FAERS Safety Report 7913370-4 (Version None)
Quarter: 2011Q4

REPORT INFORMATION
  Report Type: 
  Country: None (occurrence: None)
  Receive Date: 20111114
  Receipt Date: 20111101
  Transmission Date: 20120403
  Serious: Yes (Hospitalization)
  Sender: FDA-Public Use
  Company Number: US-ELI_LILLY_AND_COMPANY-US201008008705

PATIENT
  Sex: Female

DRUGS (7)
  1. FORTEO [Suspect]
     Indication: OSTEOPOROSIS
     Dosage: 20 UG, DAILY (1/D)
     Route: 058
     Dates: start: 20100809
  2. FORTEO [Suspect]
     Dosage: 20 UG, QD
     Route: 058
     Dates: end: 20111001
  3. ASACOL [Concomitant]
  4. FORTEO [Suspect]
     Dosage: 20 UG, DAILY (1/D)
     Route: 058
  5. PREDNISONE [Concomitant]
  6. FORTEO [Suspect]
     Dosage: 20 UG, DAILY (1/D)
     Route: 058
  7. FORTEO [Suspect]
     Dosage: 20 UG, QD
     Route: 058

REACTIONS (9)
  - HYPERCALCAEMIA [None]
  - INJECTION SITE HAEMORRHAGE [None]
  - DIZZINESS [None]
  - INJECTION SITE HAEMATOMA [None]
  - COLITIS ULCERATIVE [None]
  - INJECTION SITE ERYTHEMA [None]
  - ASTHENIA [None]
  - DEHYDRATION [None]
  - VISION BLURRED [None]
